FAERS Safety Report 18777460 (Version 6)
Quarter: 2022Q1

REPORT INFORMATION
  Report Type: Spontaneous
  Country: US (occurrence: US)
  Receive Date: 20210122
  Receipt Date: 20220301
  Transmission Date: 20220423
  Serious: Yes (Other)
  Sender: FDA-Public Use
  Company Number: US-PFIZER INC-2020387508

PATIENT
  Age: 69 Year
  Sex: Female

DRUGS (7)
  1. IBRANCE [Suspect]
     Active Substance: PALBOCICLIB
     Indication: Breast cancer metastatic
     Dosage: 125 MG
  2. IBRANCE [Suspect]
     Active Substance: PALBOCICLIB
     Dosage: 150 MG
  3. IBRANCE [Suspect]
     Active Substance: PALBOCICLIB
     Dosage: 100 MG (FIVE DAYS A WEEK )
  4. IBRANCE [Suspect]
     Active Substance: PALBOCICLIB
     Dosage: 100 MG, CYCLIC (QD (ONCE A DAY) FOR 21 DAYS OFF 7 DAYS)
  5. IBRANCE [Suspect]
     Active Substance: PALBOCICLIB
     Dosage: 100 MG, CYCLIC (DAILY 3-WEEK ON AND 1 WEEK OFF; TAKING WEEKENDS OFF)
  6. IBRANCE [Suspect]
     Active Substance: PALBOCICLIB
     Dosage: 75 MG
  7. FASLODEX [Concomitant]
     Active Substance: FULVESTRANT
     Dosage: UNK

REACTIONS (14)
  - Neutropenia [Unknown]
  - Full blood count abnormal [Unknown]
  - Neutrophil count decreased [Recovering/Resolving]
  - Blood folate decreased [Unknown]
  - Vitamin B12 decreased [Recovering/Resolving]
  - Fatigue [Unknown]
  - Anaemia [Unknown]
  - Weight decreased [Recovering/Resolving]
  - White blood cell count decreased [Unknown]
  - Red blood cell count decreased [Unknown]
  - Feeling abnormal [Unknown]
  - Metabolic disorder [Unknown]
  - COVID-19 [Unknown]
  - Off label use [Unknown]

NARRATIVE: CASE EVENT DATE: 20210428
